FAERS Safety Report 14100908 (Version 1)
Quarter: 2017Q4

REPORT INFORMATION
  Report Type: Spontaneous
  Country: RU (occurrence: RU)
  Receive Date: 20171018
  Receipt Date: 20171018
  Transmission Date: 20180321
  Serious: Yes (Other)
  Sender: FDA-Public Use
  Company Number: RU-ROCHE-2006844

PATIENT
  Age: 64 Year
  Sex: Female

DRUGS (9)
  1. HERCEPTIN [Suspect]
     Active Substance: TRASTUZUMAB
     Indication: BREAST CANCER
     Dosage: 8 COURSES: DOCETAXEL 75 MG/M2+HERCEPTIN/HERCULES
     Route: 042
     Dates: start: 20130815, end: 2014
  2. CARBOPLATIN. [Suspect]
     Active Substance: CARBOPLATIN
     Indication: BREAST CANCER
     Route: 042
     Dates: start: 201612, end: 201705
  3. HERCEPTIN [Suspect]
     Active Substance: TRASTUZUMAB
     Dosage: 6 COURSES OF GEMCITABINE + CISPLATIN + HERCEPTIN
     Route: 042
     Dates: start: 201602, end: 201605
  4. HERCEPTIN [Suspect]
     Active Substance: TRASTUZUMAB
     Dosage: 8 COURSES: PACLITAXEL+ CARBOPLATIN+ HERCEPTIN
     Route: 042
     Dates: start: 201612, end: 201705
  5. XELODA [Suspect]
     Active Substance: CAPECITABINE
     Indication: BREAST CANCER
     Route: 065
     Dates: start: 201511, end: 201601
  6. CISPLATINUM [Suspect]
     Active Substance: CISPLATIN
     Indication: BREAST CANCER
     Route: 042
     Dates: start: 201602, end: 201605
  7. PACLITAXEL. [Suspect]
     Active Substance: PACLITAXEL
     Indication: BREAST CANCER
     Route: 065
  8. DOCETAXEL. [Suspect]
     Active Substance: DOCETAXEL
     Indication: BREAST CANCER
     Route: 065
     Dates: start: 20130808, end: 20140117
  9. GEMCITABINE [Suspect]
     Active Substance: GEMCITABINE\GEMCITABINE HYDROCHLORIDE
     Indication: BREAST CANCER
     Route: 042
     Dates: start: 201602, end: 201605

REACTIONS (11)
  - Asthenia [Unknown]
  - Rash [Unknown]
  - Nausea [Unknown]
  - Aphasia [Unknown]
  - Polyneuropathy [Unknown]
  - Ataxia [Unknown]
  - Stomatitis [Unknown]
  - Palmar-plantar erythrodysaesthesia syndrome [Unknown]
  - Neutropenia [Unknown]
  - Anaemia [Unknown]
  - Vomiting [Unknown]

NARRATIVE: CASE EVENT DATE: 201511
